FAERS Safety Report 6367092-4 (Version None)
Quarter: 2009Q3

REPORT INFORMATION
  Report Type: 
  Country: None (occurrence: None)
  Receive Date: 20090921
  Receipt Date: 20090916
  Transmission Date: 20100115
  Serious: Yes (Death)
  Sender: FDA-Public Use
  Company Number: US-ASTRAZENECA-2009SE13478

PATIENT

DRUGS (1)
  1. MERREM [Suspect]
     Dosage: 6 DOSES
     Route: 042

REACTIONS (3)
  - CONVULSION [None]
  - MULTIPLE MYELOMA [None]
  - THROMBOCYTOPENIA [None]
